FAERS Safety Report 5905456-0 (Version None)
Quarter: 2008Q4

REPORT INFORMATION
  Report Type: 
  Country: None (occurrence: None)
  Receive Date: 20081001
  Receipt Date: 20081001
  Transmission Date: 20090506
  Serious: Yes (Hospitalization)
  Sender: FDA-Public Use
  Company Number: None

PATIENT
  Age: 71 Year
  Sex: Female
  Weight: 68.0396 kg

DRUGS (2)
  1. METOCLOPRAMIDE [Suspect]
     Indication: DIABETIC GASTROPARESIS
     Dosage: 10 MG 4 TIMES A DAY
     Dates: start: 20070301, end: 20070701
  2. DOMPERIDONE 10MG FROM CANADA [Suspect]
     Dosage: 10 MG 4 TIMES A DAY DID NOT TAKE ANY

REACTIONS (7)
  - AGITATION [None]
  - ANOREXIA [None]
  - ANXIETY [None]
  - INSOMNIA [None]
  - TARDIVE DYSKINESIA [None]
  - VISION BLURRED [None]
  - WEIGHT DECREASED [None]
